FAERS Safety Report 17418483 (Version 1)
Quarter: 2020Q1

REPORT INFORMATION
  Report Type: Spontaneous
  Country: US (occurrence: US)
  Receive Date: 20200214
  Receipt Date: 20200214
  Transmission Date: 20200409
  Serious: No
  Sender: FDA-Public Use
  Company Number: US-LUPIN PHARMACEUTICALS INC.-2020-00282

PATIENT
  Age: 68 Year
  Sex: Male

DRUGS (4)
  1. AZITHROMYCIN TABLETS, 250 MG [Suspect]
     Active Substance: AZITHROMYCIN
     Indication: EAR INFECTION
     Dosage: 2 DOSAGE FORM, SINGLE
     Route: 065
  2. PREDNISONE. [Concomitant]
     Active Substance: PREDNISONE
     Indication: EAR INFECTION
     Dosage: UNK (TAPERED DOSE)
     Route: 065
  3. ESOMEPRAZOLE MAGNESIUM. [Concomitant]
     Active Substance: ESOMEPRAZOLE MAGNESIUM
     Indication: PRODUCT USED FOR UNKNOWN INDICATION
     Dosage: UNK (TAPERED DOSE)
     Route: 065
  4. AZITHROMYCIN TABLETS, 250 MG [Suspect]
     Active Substance: AZITHROMYCIN
     Dosage: 250 MILLIGRAM, QD
     Route: 065

REACTIONS (1)
  - Drug ineffective [Unknown]
